FAERS Safety Report 15118009 (Version 3)
Quarter: 2025Q1

REPORT INFORMATION
  Report Type: Report from Study
  Country: DE (occurrence: DE)
  Receive Date: 20180707
  Receipt Date: 20250320
  Transmission Date: 20250409
  Serious: Yes (Congenital Anomaly)
  Sender: AUROBINDO
  Company Number: DE-AUROBINDO-AUR-APL-2018-034678

PATIENT

DRUGS (4)
  1. ACETAMINOPHEN [Suspect]
     Active Substance: ACETAMINOPHEN
     Indication: Product used for unknown indication
     Route: 064
  2. SUMATRIPTAN [Suspect]
     Active Substance: SUMATRIPTAN
     Indication: Product used for unknown indication
     Route: 064
  3. DIMENHYDRINATE [Suspect]
     Active Substance: DIMENHYDRINATE
     Indication: Product used for unknown indication
     Route: 064
  4. DIMENHYDRINATE [Suspect]
     Active Substance: DIMENHYDRINATE
     Route: 064

REACTIONS (2)
  - Polydactyly [Unknown]
  - Foetal exposure during pregnancy [Unknown]
